FAERS Safety Report 8471664 (Version 5)
Quarter: 2013Q4

REPORT INFORMATION
  Report Type: Spontaneous
  Country: US (occurrence: US)
  Receive Date: 20120322
  Receipt Date: 20131016
  Transmission Date: 20140711
  Serious: Yes (Other)
  Sender: FDA-Public Use
  Company Number: US-PFIZER INC-2012072167

PATIENT
  Age: 34 Year
  Sex: Female

DRUGS (3)
  1. ZOLOFT [Suspect]
     Indication: DEPRESSION
     Dosage: 100 MG, UNK
     Route: 048
     Dates: start: 20030127, end: 20040121
  2. PRENATAL VITAMINS [Concomitant]
     Dosage: UNK
     Dates: end: 20040121
  3. LOVENOX [Concomitant]
     Dosage: 80 MG, 1X/DAY
     Dates: start: 20040107

REACTIONS (1)
  - Stillbirth [Unknown]
